FAERS Safety Report 18689404 (Version 2)
Quarter: 2021Q1

REPORT INFORMATION
  Report Type: Spontaneous
  Country: RU (occurrence: RU)
  Receive Date: 20201231
  Receipt Date: 20210210
  Transmission Date: 20210419
  Serious: Yes (Hospitalization)
  Sender: FDA-Public Use
  Company Number: RU-JNJFOC-20201235472

PATIENT
  Age: 22 Year
  Sex: Female

DRUGS (4)
  1. WARFARIN [Concomitant]
     Active Substance: WARFARIN
     Dates: start: 20180913, end: 20181110
  2. VEROSPIRON [Concomitant]
     Active Substance: SPIRONOLACTONE
     Dates: start: 20180914, end: 20181111
  3. OPSUMIT [Suspect]
     Active Substance: MACITENTAN
     Indication: PULMONARY ARTERIAL HYPERTENSION
     Route: 048
     Dates: start: 20180305, end: 20181111
  4. RIOCIGUAT. [Concomitant]
     Active Substance: RIOCIGUAT
     Indication: PULMONARY ARTERIAL HYPERTENSION
     Dates: start: 20180913, end: 20181111

REACTIONS (6)
  - Right ventricular dilatation [Unknown]
  - Dyspnoea [Unknown]
  - Respiratory tract infection viral [Unknown]
  - Pulmonary arterial pressure increased [Unknown]
  - Pulmonary arterial hypertension [Unknown]
  - Hypoaesthesia [Unknown]

NARRATIVE: CASE EVENT DATE: 201809
